FAERS Safety Report 8825915 (Version 1)
Quarter: 2012Q4

REPORT INFORMATION
  Report Type: 
  Country: BR (occurrence: BR)
  Receive Date: 20121005
  Receipt Date: 20121005
  Transmission Date: 20130627
  Serious: Yes (Disabling)
  Sender: FDA-Public Use
  Company Number: BR-ABBOTT-12P-020-0987094-00

PATIENT
  Age: 58 None
  Sex: Female
  Weight: 86 kg

DRUGS (3)
  1. DEPAKENE [Suspect]
     Indication: EPILEPSY
     Dosage: 1 syrup measure
     Route: 048
     Dates: start: 2009
  2. DEPAKENE [Suspect]
     Dosage: 1 syrup measure
  3. DUPHALAC [Suspect]
     Indication: PRODUCT USED FOR UNKNOWN INDICATION
     Dates: start: 20120923

REACTIONS (10)
  - Abasia [Not Recovered/Not Resolved]
  - Mobility decreased [Not Recovered/Not Resolved]
  - Alopecia [Recovered/Resolved]
  - Abdominal discomfort [Recovered/Resolved]
  - Diabetes mellitus [Recovering/Resolving]
  - Hyperlipidaemia [Recovered/Resolved]
  - Dyskinesia [Unknown]
  - Drug prescribing error [Unknown]
  - Incoherent [Unknown]
  - Confusional state [Unknown]
